FAERS Safety Report 19091143 (Version 1)
Quarter: 2021Q2

REPORT INFORMATION
  Report Type: Other
  Country: FR (occurrence: FR)
  Receive Date: 20210405
  Receipt Date: 20210405
  Transmission Date: 20210717
  Serious: Yes (Hospitalization)
  Sender: FDA-Public Use
  Company Number: FR-CADILA HEALTHCARE LIMITED-FR-ZYDUS-063909

PATIENT

DRUGS (4)
  1. ATORVASTATIN [Suspect]
     Active Substance: ATORVASTATIN
     Indication: MYOCARDIAL ISCHAEMIA
     Dosage: 30 MILLIGRAM
     Route: 048
     Dates: end: 20210303
  2. AUGMENTINE [AMOXICILLIN;CLAVULANIC ACID] [Suspect]
     Active Substance: AMOXICILLIN\CLAVULANIC ACID
     Indication: BACTERAEMIA
     Dosage: 3 DOSAGE FORM
     Route: 048
     Dates: start: 20210204, end: 20210301
  3. ALLOPURINOL. [Suspect]
     Active Substance: ALLOPURINOL
     Indication: GOUTY ARTHRITIS
     Dosage: 100 MILLIGRAM
     Route: 048
     Dates: end: 20210303
  4. AMOXICILLIN. [Suspect]
     Active Substance: AMOXICILLIN
     Indication: BACTERAEMIA
     Dosage: 3 GRAM
     Route: 048
     Dates: start: 20210204, end: 20210301

REACTIONS (1)
  - Acute generalised exanthematous pustulosis [Recovered/Resolved]

NARRATIVE: CASE EVENT DATE: 20210226
